FAERS Safety Report 9646118 (Version 3)
Quarter: 2013Q4

REPORT INFORMATION
  Report Type: Spontaneous
  Country: US (occurrence: US)
  Receive Date: 20131025
  Receipt Date: 20131206
  Transmission Date: 20140711
  Serious: Yes (Hospitalization)
  Sender: FDA-Public Use
  Company Number: US-JHP PHARMACEUTICALS, LLC-JHP201300623

PATIENT
  Age: 50 Year
  Sex: Female
  Weight: 61.68 kg

DRUGS (9)
  1. APLISOL DIAGNOSTIC ANTIGEN [Suspect]
     Indication: TUBERCULIN TEST
     Dosage: UNK
     Dates: start: 20130903, end: 20130903
  2. APLISOL DIAGNOSTIC ANTIGEN [Suspect]
     Dosage: UNK
     Dates: start: 20131003, end: 20131003
  3. PREVACID [Concomitant]
     Dosage: 30 MG, BID
  4. BISOPROLOL [Concomitant]
     Dosage: 5 MG, DAILY
  5. ALLEGRA [Concomitant]
     Dosage: 60 MG, UNK
  6. COZAAR [Concomitant]
     Dosage: 50 MG, UNK
  7. INSPRA [Concomitant]
     Dosage: 25 MG, UNK
  8. CO Q 10 [Concomitant]
     Dosage: 100 MG, UNK
  9. MAGNESIUM OXIDE [Concomitant]

REACTIONS (1)
  - Cellulitis [Recovered/Resolved]
